FAERS Safety Report 8368326-7 (Version None)
Quarter: 2012Q2

REPORT INFORMATION
  Report Type: 
  Country: None (occurrence: None)
  Receive Date: 20120517
  Receipt Date: 20120516
  Transmission Date: 20120825
  Serious: Yes (Hospitalization)
  Sender: FDA-Public Use
  Company Number: CO-ABBOTT-12P-036-0935832-00

PATIENT
  Sex: Male

DRUGS (1)
  1. ZEMPLAR [Suspect]
     Indication: HYPERPARATHYROIDISM
     Dosage: 2 MCG DAILY
     Route: 048
     Dates: start: 20120302, end: 20120513

REACTIONS (3)
  - PYREXIA [None]
  - ABDOMINAL PAIN [None]
  - VOMITING [None]
